FAERS Safety Report 5615787-X (Version None)
Quarter: 2008Q1

REPORT INFORMATION
  Report Type: 
  Country: None (occurrence: None)
  Receive Date: 20080201
  Receipt Date: 20080123
  Transmission Date: 20080703
  Serious: Yes (Other)
  Sender: FDA-Public Use
  Company Number: 2008AP000253

PATIENT
  Age: 35 Year
  Sex: Female

DRUGS (6)
  1. PAROXETINE HCL [Suspect]
     Dosage: 20 MG;QD; 30 MG;QD; 20 MG;QOD
     Dates: start: 19970615
  2. PAROXETINE HCL [Suspect]
     Dosage: 20 MG;QD; 30 MG;QD; 20 MG;QOD
     Dates: start: 19980120
  3. PAROXETINE HCL [Suspect]
     Dosage: 20 MG;QD; 30 MG;QD; 20 MG;QOD
     Dates: start: 19980302
  4. PAROXETINE HCL [Suspect]
     Dosage: 20 MG;QD; 30 MG;QD; 20 MG;QOD
     Dates: start: 19980713
  5. PAROXETINE HCL [Suspect]
     Dosage: 20 MG;QD; 30 MG;QD; 20 MG;QOD
     Dates: start: 19981214
  6. PAROXETINE HCL [Suspect]
     Dosage: 20 MG;QD; 30 MG;QD; 20 MG;QOD
     Dates: start: 19990112

REACTIONS (15)
  - AGITATION [None]
  - ANXIETY [None]
  - CONFUSIONAL STATE [None]
  - DIZZINESS [None]
  - DRUG WITHDRAWAL SYNDROME [None]
  - FATIGUE [None]
  - HEADACHE [None]
  - HYPERHIDROSIS [None]
  - HYPOAESTHESIA FACIAL [None]
  - INFLUENZA LIKE ILLNESS [None]
  - NIGHTMARE [None]
  - PANIC ATTACK [None]
  - PARAESTHESIA [None]
  - SUICIDAL IDEATION [None]
  - TREMOR [None]
